FAERS Safety Report 7497715-8 (Version None)
Quarter: 2011Q2

REPORT INFORMATION
  Report Type: 
  Country: None (occurrence: None)
  Receive Date: 20110523
  Receipt Date: 20110519
  Transmission Date: 20111010
  Serious: Yes (Death)
  Sender: FDA-Public Use
  Company Number: PHHY2011NO42940

PATIENT

DRUGS (4)
  1. DOXORUBICIN HCL [Suspect]
     Indication: BONE SARCOMA
     Dosage: 75 MG/M (4-HOUR CONTINUOUS INFUSION), 02 CYCLES
  2. METHOTREXATE [Suspect]
     Indication: BONE SARCOMA
     Dosage: 12 G/M (4-HOUR INFUSION) 2 CYCLES
  3. CISPLATIN [Suspect]
     Indication: BONE SARCOMA
     Dosage: 02 CYCLES, 90 MG/M (48-HOUR CONTINUOUS INFUSION)
  4. IFOSFAMIDE [Suspect]
     Indication: BONE SARCOMA
     Dosage: 2 G/M /DAY FOR 5 DAYS

REACTIONS (1)
  - DEATH [None]
